FAERS Safety Report 7861269-4 (Version None)
Quarter: 2011Q4

REPORT INFORMATION
  Report Type: 
  Country: None (occurrence: None)
  Receive Date: 20111027
  Receipt Date: 20111017
  Transmission Date: 20120403
  Serious: Yes (Other)
  Sender: FDA-Public Use
  Company Number: CA-JNJFOC-20111010531

PATIENT
  Sex: Female
  Weight: 34 kg

DRUGS (1)
  1. REMICADE [Suspect]
     Indication: CROHN'S DISEASE
     Route: 042
     Dates: start: 20081202

REACTIONS (2)
  - ECTOPIC PREGNANCY [None]
  - MATERNAL EXPOSURE DURING PREGNANCY [None]
